FAERS Safety Report 7771838-8 (Version None)
Quarter: 2011Q3

REPORT INFORMATION
  Report Type: 
  Country: None (occurrence: None)
  Receive Date: 20110922
  Receipt Date: 20110913
  Transmission Date: 20111222
  Serious: Yes (Other)
  Sender: FDA-Public Use
  Company Number: US-MILLENNIUM PHARMACEUTICALS, INC.-2011-04262

PATIENT

DRUGS (6)
  1. PREDNISONE [Suspect]
     Dosage: 100 MG, CYCLIC
     Route: 048
  2. RITUXIMAB [Suspect]
     Dosage: 375 MG/M2, CYCLIC
  3. CYCLOPHOSPHAMIDE [Suspect]
     Dosage: UNK
  4. ACYCLOVIR [Concomitant]
     Indication: PROPHYLAXIS
  5. VELCADE [Suspect]
     Dosage: UNK
  6. SULFAMETHOXAZOLE AND TRIMETHOPRIM [Concomitant]
     Indication: PROPHYLAXIS

REACTIONS (1)
  - HYPOGLYCAEMIA [None]
